FAERS Safety Report 8774309 (Version 1)
Quarter: 2012Q4

REPORT INFORMATION
  Report Type: 
  Country: US (occurrence: US)
  Receive Date: 20120907
  Receipt Date: 20120907
  Transmission Date: 20130627
  Serious: No
  Sender: FDA-Public Use
  Company Number: US-009507513-1208USA010025

PATIENT

DRUGS (1)
  1. COSOPT [Suspect]
     Route: 047

REACTIONS (3)
  - Burning sensation [Unknown]
  - Pain [Unknown]
  - Incorrect storage of drug [Unknown]
